FAERS Safety Report 7255224-5 (Version None)
Quarter: 2011Q1

REPORT INFORMATION
  Report Type: 
  Country: None (occurrence: None)
  Receive Date: 20110129
  Receipt Date: 20100322
  Transmission Date: 20110831
  Serious: No
  Sender: FDA-Public Use
  Company Number: US-ABBOTT-10P-163-0634629-00

PATIENT
  Sex: Male
  Weight: 79.45 kg

DRUGS (3)
  1. HUMIRA [Suspect]
     Route: 058
  2. HUMIRA [Suspect]
     Route: 058
  3. HUMIRA [Suspect]
     Indication: CROHN'S DISEASE
     Route: 058

REACTIONS (3)
  - ARTHRALGIA [None]
  - CHILLS [None]
  - PYREXIA [None]
